FAERS Safety Report 5029286-X (Version None)
Quarter: 2006Q2

REPORT INFORMATION
  Report Type: 
  Country: None (occurrence: None)
  Receive Date: 20060619
  Receipt Date: 20030310
  Transmission Date: 20061013
  Serious: Yes (Hospitalization)
  Sender: FDA-Public Use
  Company Number: AU-ABBOTT-03P-008-0213450-00

PATIENT
  Age: 58 Year
  Sex: Male
  Weight: 123 kg

DRUGS (7)
  1. REDUCTIL 10MG [Suspect]
     Indication: OBESITY
     Route: 048
     Dates: start: 20020417, end: 20020428
  2. RAMIPRIL [Concomitant]
     Indication: HYPERTENSION
     Route: 048
  3. COLOXYL WITH SENNA [Concomitant]
     Indication: CONSTIPATION
     Route: 048
  4. DICLOFENAC SODIUM [Concomitant]
     Indication: DRUG USE FOR UNKNOWN INDICATION
     Route: 048
     Dates: end: 20020428
  5. ACETYLSALICYLIC ACID SRT [Concomitant]
     Indication: DRUG USE FOR UNKNOWN INDICATION
     Route: 048
  6. VERAPAMIL HYDROCHLORIDE [Concomitant]
     Indication: DRUG USE FOR UNKNOWN INDICATION
     Route: 048
     Dates: end: 20020501
  7. ATORVASTATIN CALCIUM [Concomitant]
     Indication: METABOLIC DISORDER
     Route: 048

REACTIONS (4)
  - CHEST PAIN [None]
  - DYSPNOEA [None]
  - PRURITUS GENERALISED [None]
  - SWELLING FACE [None]
